FAERS Safety Report 5405960-8 (Version None)
Quarter: 2007Q3

REPORT INFORMATION
  Report Type: 
  Country: None (occurrence: None)
  Receive Date: 20070802
  Receipt Date: 20070726
  Transmission Date: 20080115
  Serious: Yes (Other)
  Sender: FDA-Public Use
  Company Number: 163-21880-07071639

PATIENT
  Age: 81 Year

DRUGS (1)
  1. REVLIMID [Suspect]
     Indication: MULTIPLE MYELOMA
     Dosage: 25 MG, WIN 1 D, ORAL
     Route: 048
     Dates: start: 20070601

REACTIONS (1)
  - RENAL TUBULAR ACIDOSIS [None]
